FAERS Safety Report 23554511 (Version 1)
Quarter: 2024Q1

REPORT INFORMATION
  Report Type: Report from Study
  Country: CA (occurrence: CA)
  Receive Date: 20240222
  Receipt Date: 20240222
  Transmission Date: 20240410
  Serious: Yes (Other)
  Sender: FDA-Public Use
  Company Number: CA-JNJFOC-20240147462

PATIENT
  Age: 21 Year
  Sex: Female

DRUGS (1)
  1. SIMPONI [Suspect]
     Active Substance: GOLIMUMAB
     Indication: Ankylosing spondylitis
     Dosage: LAST SIMPONI DOSE ON 18-JAN-2024
     Route: 058
     Dates: start: 20230531

REACTIONS (3)
  - Tooth extraction [Unknown]
  - Folliculitis [Unknown]
  - Gait disturbance [Unknown]
